FAERS Safety Report 8517577 (Version 2)
Quarter: 2014Q2

REPORT INFORMATION
  Report Type: Spontaneous
  Country: US (occurrence: US)
  Receive Date: 20120417
  Receipt Date: 20140522
  Transmission Date: 20141212
  Serious: Yes (Other)
  Sender: FDA-Public Use
  Company Number: US-ASTRAZENECA-2012SE06961

PATIENT
  Age: 59 Year
  Sex: Male
  Weight: 122.5 kg

DRUGS (17)
  1. NEXIUM [Suspect]
     Indication: GASTROOESOPHAGEAL REFLUX DISEASE
     Route: 048
     Dates: start: 2005, end: 201405
  2. PRILOSEC OTC [Suspect]
     Indication: GASTROOESOPHAGEAL REFLUX DISEASE
     Route: 048
     Dates: start: 2014
  3. LISINOPRIL [Suspect]
     Indication: BLOOD PRESSURE
     Route: 048
  4. NEURONTIN [Concomitant]
     Indication: POOR PERIPHERAL CIRCULATION
     Route: 048
  5. COREG [Concomitant]
     Indication: CARDIAC DISORDER
     Route: 048
  6. IMDUR [Concomitant]
     Indication: CARDIAC DISORDER
     Route: 048
  7. WARFARIN [Concomitant]
     Indication: ANTICOAGULANT THERAPY
     Route: 048
  8. LASIX [Concomitant]
     Indication: DIURETIC THERAPY
     Route: 048
  9. ZAROXOLYN [Concomitant]
     Indication: DIURETIC THERAPY
     Route: 048
  10. PRAVASTATIN [Concomitant]
     Indication: BLOOD CHOLESTEROL
     Route: 048
  11. XANAX [Concomitant]
     Indication: NERVOUS SYSTEM DISORDER
     Route: 048
     Dates: start: 2000
  12. PERCOCET [Concomitant]
     Indication: BACK PAIN
     Dosage: 10/650MG TID
     Route: 048
     Dates: start: 1999
  13. ASPIRIN [Concomitant]
     Indication: CARDIAC DISORDER
     Route: 048
     Dates: start: 1994
  14. STOOL SOFTNER OTC [Concomitant]
     Dosage: 1-2 DAILY
     Route: 048
  15. AMBIEN [Concomitant]
     Indication: INSOMNIA
     Route: 048
  16. VIT C [Concomitant]
     Indication: SUPPLEMENTATION THERAPY
     Route: 048
  17. MULTIVITAMIN [Concomitant]
     Indication: SUPPLEMENTATION THERAPY
     Dosage: 1 TB DAILY
     Route: 048

REACTIONS (5)
  - Cardiac disorder [Unknown]
  - Pain [Unknown]
  - Drug ineffective [Unknown]
  - Intentional product misuse [Unknown]
  - Drug dose omission [Unknown]
